FAERS Safety Report 6704507-3 (Version None)
Quarter: 2010Q2

REPORT INFORMATION
  Report Type: 
  Country: None (occurrence: None)
  Receive Date: 20100430
  Receipt Date: 20100419
  Transmission Date: 20101027
  Serious: Yes (Hospitalization, Other)
  Sender: FDA-Public Use
  Company Number: PHHY2010JP07607

PATIENT
  Sex: Female
  Weight: 42 kg

DRUGS (21)
  1. ZOMETA [Suspect]
     Indication: METASTASES TO BONE
     Dosage: 4 MG
     Route: 041
     Dates: start: 20061214, end: 20100119
  2. OXYCONTIN [Suspect]
     Indication: DYSPNOEA
     Dosage: 10 MG/DAY
     Route: 048
     Dates: start: 20070510, end: 20070801
  3. OXYCONTIN [Suspect]
     Indication: CANCER PAIN
     Dosage: 10 MG/DAY
     Route: 048
     Dates: start: 20081203
  4. OXYCONTIN [Suspect]
     Dosage: 20 MG/DAY
     Route: 048
     Dates: start: 20091208, end: 20100102
  5. OXYCONTIN [Suspect]
     Dosage: 10MG/DAY
     Route: 048
     Dates: start: 20100306, end: 20100318
  6. DUROTEP [Concomitant]
     Indication: CANCER PAIN
     Dosage: UNK
     Route: 062
     Dates: start: 20100102
  7. OXINORM [Concomitant]
     Indication: BACK PAIN
     Dosage: UNK
     Route: 048
     Dates: start: 20091203
  8. FEMARA [Concomitant]
     Indication: BREAST CANCER RECURRENT
     Dosage: 2.5 MG, UNK
     Route: 048
     Dates: start: 20070927
  9. NAPA [Concomitant]
     Indication: BACK PAIN
     Dosage: 2000 MG, UNK
     Route: 048
     Dates: start: 20070111
  10. NAPA [Concomitant]
     Indication: PYREXIA
     Dosage: 500 MG, UNK
     Route: 048
     Dates: start: 20070111
  11. HYPEN [Concomitant]
     Indication: BACK PAIN
     Dosage: 400 MG, UNK
  12. HYPEN [Concomitant]
     Dosage: UNK
     Route: 048
     Dates: start: 20070308
  13. TRAVELMIN [Concomitant]
     Indication: NAUSEA
     Dosage: 120 MG, UNK
     Route: 048
     Dates: start: 20100112
  14. NAUZELIN [Concomitant]
     Indication: NAUSEA
     Dosage: 60 MG, UNK
     Dates: start: 20100112
  15. OMEPRAL [Concomitant]
     Indication: GASTRIC ULCER
     Dosage: 20 MG, UNK
     Route: 048
     Dates: start: 20100210
  16. PRIMPERAN [Concomitant]
     Indication: NAUSEA
     Dosage: 15 MG, UNK
     Route: 048
     Dates: start: 20100212
  17. MYSLEE [Concomitant]
     Indication: INSOMNIA
     Dosage: 5 MG, UNK
     Route: 048
     Dates: start: 20100306
  18. PICIBANIL [Concomitant]
     Indication: MALIGNANT PLEURAL EFFUSION
     Dosage: UNK
     Route: 048
     Dates: start: 20100308, end: 20100308
  19. MINOCYCLINE HYDROCHLORIDE [Concomitant]
     Indication: MALIGNANT PLEURAL EFFUSION
     Dosage: 100 MG, UNK
     Dates: start: 20100308, end: 20100308
  20. RADIATION THERAPY [Concomitant]
     Indication: PAIN
  21. OPIOIDS [Concomitant]

REACTIONS (12)
  - ASPIRATION PLEURAL CAVITY [None]
  - CONCOMITANT DISEASE AGGRAVATED [None]
  - DYSPNOEA [None]
  - GASTRIC ULCER [None]
  - HYPOPHAGIA [None]
  - MALAISE [None]
  - METASTASES TO MENINGES [None]
  - NAUSEA [None]
  - NERVOUSNESS [None]
  - PLEURAL EFFUSION [None]
  - SOMNOLENCE [None]
  - VOMITING [None]
